FAERS Safety Report 12889680 (Version 3)
Quarter: 2016Q4

REPORT INFORMATION
  Report Type: Report from Study
  Country: None (occurrence: GB)
  Receive Date: 20161027
  Receipt Date: 20161216
  Transmission Date: 20170207
  Serious: Yes (Hospitalization)
  Sender: FDA-Public Use
  Company Number: GB-ABBVIE-16P-167-1762423-00

PATIENT
  Age: 11 Year
  Sex: Male
  Weight: 27.3 kg

DRUGS (7)
  1. AZATHIOPRINE. [Concomitant]
     Active Substance: AZATHIOPRINE
     Indication: CROHN^S DISEASE
     Route: 048
     Dates: start: 20140115
  2. HUMIRA [Suspect]
     Active Substance: ADALIMUMAB
     Indication: CROHN^S DISEASE
     Route: 058
     Dates: start: 20160112
  3. MODULEN [Concomitant]
     Indication: CROHN^S DISEASE
     Route: 050
     Dates: start: 20131217
  4. VSL#3 PROBIOTIC [Concomitant]
     Indication: CROHN^S DISEASE
     Route: 050
     Dates: start: 20160407
  5. COTRIMOXAZOLE [Concomitant]
     Active Substance: SULFAMETHOXAZOLE\TRIMETHOPRIM
     Indication: CROHN^S DISEASE
     Dosage: BD MONDAY, WEDNESDAY, THURSDAY
     Route: 048
     Dates: start: 20160927
  6. PREDNISOLONE. [Concomitant]
     Active Substance: PREDNISOLONE
     Indication: CROHN^S DISEASE
     Dosage: REDUCE BY 5 EVERY WEEK
     Route: 048
     Dates: start: 20160929
  7. HUMIRA [Suspect]
     Active Substance: ADALIMUMAB
     Route: 058
     Dates: start: 20160315

REACTIONS (1)
  - Crohn^s disease [Recovered/Resolved]

NARRATIVE: CASE EVENT DATE: 20160927
